FAERS Safety Report 14941408 (Version 6)
Quarter: 2018Q3

REPORT INFORMATION
  Report Type: Spontaneous
  Country: US (occurrence: US)
  Receive Date: 20180526
  Receipt Date: 20180928
  Transmission Date: 20181010
  Serious: Yes (Other)
  Sender: FDA-Public Use
  Company Number: US-TEVA-2018-US-890030

PATIENT
  Sex: Female
  Weight: 76.27 kg

DRUGS (18)
  1. DIFLUCAN [Concomitant]
     Active Substance: FLUCONAZOLE
     Indication: FUNGAL INFECTION
     Dosage: FREQUENCY ? ONCE
     Route: 065
     Dates: start: 20180711, end: 20180711
  2. PROBIOTICA [Concomitant]
     Active Substance: PROBIOTICS NOS
     Indication: SUPPLEMENTATION THERAPY
     Dates: start: 2018
  3. PRENATAL VITAMINS [Concomitant]
     Active Substance: VITAMINS
     Indication: PREGNANCY
     Dosage: 1 DOSAGE FORMS DAILY;
     Dates: start: 20180604
  4. ZANTAC [Concomitant]
     Active Substance: RANITIDINE HYDROCHLORIDE
     Indication: DYSPEPSIA
     Dosage: 300 MILLIGRAM DAILY; PRN BID
     Dates: start: 2018
  5. OXYBATE SODIUM [Concomitant]
     Active Substance: SODIUM OXYBATE
     Indication: NARCOLEPSY
     Dosage: 4 GRAMS TWICE NIGHT.
     Dates: start: 201709
  6. METROGEL?VAGINAL [Concomitant]
     Active Substance: METRONIDAZOLE
     Indication: BACTERIAL INFECTION
     Dosage: 0.75
     Dates: start: 20180525, end: 20180530
  7. CLINDAMYCIN. [Concomitant]
     Active Substance: CLINDAMYCIN
     Dosage: 8 HOURS A DAY
     Dates: start: 20180701, end: 20180708
  8. LEXAPRO [Concomitant]
     Active Substance: ESCITALOPRAM OXALATE
     Indication: DEPRESSION
     Dates: start: 201801
  9. NUVIGIL [Suspect]
     Active Substance: ARMODAFINIL
     Indication: NARCOLEPSY
     Route: 065
     Dates: start: 201710
  10. CITALOPRAM [Concomitant]
     Active Substance: CITALOPRAM HYDROBROMIDE
     Indication: DEPRESSION
     Dates: start: 201801
  11. XYREM [Concomitant]
     Active Substance: SODIUM OXYBATE
     Indication: NARCOLEPSY
     Dosage: TWICE NIGHTLY
     Dates: start: 20170509
  12. FLOMAX [Concomitant]
     Active Substance: TAMSULOSIN HYDROCHLORIDE
     Indication: HYPERTONIC BLADDER
     Route: 065
     Dates: start: 201801
  13. FLOMAX [Concomitant]
     Active Substance: TAMSULOSIN HYDROCHLORIDE
     Indication: BLADDER SPHINCTER ATONY
  14. TAMSULOSIN [Concomitant]
     Active Substance: TAMSULOSIN
     Indication: HYPERTONIC BLADDER
     Dates: start: 201801
  15. DIFLUCAN [Concomitant]
     Active Substance: FLUCONAZOLE
     Indication: VULVOVAGINAL MYCOTIC INFECTION
     Dosage: 1 PILL CAN REPEAT IF NEEDED
     Route: 048
     Dates: start: 20180608, end: 20180608
  16. MONISTAT [Concomitant]
     Active Substance: MICONAZOLE NITRATE
     Indication: FUNGAL INFECTION
     Dosage: 9 DAYS X 7 DAYS, PRN
     Dates: start: 20180518, end: 20180525
  17. PYRIDOXINE/VITAMIN B6 [Concomitant]
     Indication: NAUSEA
     Dates: start: 20180604
  18. URSODIOL. [Concomitant]
     Active Substance: URSODIOL
     Indication: INTRACRANIAL PRESSURE INCREASED
     Dosage: 1000 MILLIGRAM DAILY;
     Dates: start: 20180816

REACTIONS (3)
  - Cholestasis of pregnancy [Unknown]
  - Maternal exposure during pregnancy [Unknown]
  - Vomiting in pregnancy [Unknown]
